FAERS Safety Report 21260422 (Version 5)
Quarter: 2023Q2

REPORT INFORMATION
  Report Type: Spontaneous
  Country: ES (occurrence: ES)
  Receive Date: 20220826
  Receipt Date: 20230406
  Transmission Date: 20230721
  Serious: Yes (Death, Hospitalization, Other)
  Sender: FDA-Public Use
  Company Number: ES-BEIGENE AUS PTY LTD-BGN-2022-008250

PATIENT
  Age: 37 Year
  Sex: Male
  Weight: 58 kg

DRUGS (7)
  1. AZACITIDINE [Suspect]
     Active Substance: AZACITIDINE
     Indication: Acute myeloid leukaemia
     Dosage: 128MG, QD
     Route: 042
     Dates: start: 20220602
  2. AZACITIDINE [Suspect]
     Active Substance: AZACITIDINE
     Dosage: 124MG,QD
     Route: 042
     Dates: start: 20220712, end: 20220712
  3. BGB-11417 [Suspect]
     Active Substance: BGB-11417
     Indication: Acute myeloid leukaemia
     Dosage: 20MG, QD
     Route: 048
     Dates: start: 20220602
  4. BGB-11417 [Suspect]
     Active Substance: BGB-11417
     Dosage: 160MG,QD
     Route: 048
     Dates: start: 20220704, end: 20220713
  5. CEFUROXIME [Concomitant]
     Active Substance: CEFUROXIME
     Indication: Product used for unknown indication
  6. OMEPRAZOLE [Concomitant]
     Active Substance: OMEPRAZOLE
     Indication: Product used for unknown indication
  7. ALLOPURINOL [Concomitant]
     Active Substance: ALLOPURINOL
     Indication: Product used for unknown indication

REACTIONS (2)
  - Enterocolitis infectious [Recovered/Resolved]
  - Acute myeloid leukaemia [Fatal]

NARRATIVE: CASE EVENT DATE: 20220808
